FAERS Safety Report 10623178 (Version 1)
Quarter: 2014Q4

REPORT INFORMATION
  Report Type: Spontaneous
  Country: US (occurrence: None)
  Receive Date: 20141202
  Receipt Date: 20141202
  Transmission Date: 20150529
  Serious: Yes (Hospitalization, Disabling)
  Sender: FDA-Public Use
  Company Number: None

PATIENT
  Age: 57 Year
  Sex: Male

DRUGS (1)
  1. HUMIRA [Suspect]
     Active Substance: ADALIMUMAB
     Indication: CROHN^S DISEASE
     Dosage: 1 SHOT
     Route: 030
     Dates: start: 20121015, end: 20130415

REACTIONS (9)
  - Weight decreased [None]
  - Asthenia [None]
  - Nervousness [None]
  - Disorientation [None]
  - Muscular weakness [None]
  - Euphoric mood [None]
  - Confusional state [None]
  - Lethargy [None]
  - Decreased appetite [None]

NARRATIVE: CASE EVENT DATE: 20130415
